FAERS Safety Report 16995153 (Version 7)
Quarter: 2020Q2

REPORT INFORMATION
  Report Type: Report from Study
  Country: None (occurrence: US)
  Receive Date: 20191105
  Receipt Date: 20200626
  Transmission Date: 20200713
  Serious: Yes (Hospitalization)
  Sender: FDA-Public Use
  Company Number: US-ABBVIE-19K-163-2988373-00

PATIENT
  Age: 81 Year
  Sex: Male

DRUGS (3)
  1. VENCLEXTA [Suspect]
     Active Substance: VENETOCLAX
     Route: 048
  2. VENCLEXTA [Suspect]
     Active Substance: VENETOCLAX
     Indication: B-CELL LYMPHOMA
     Dosage: TAKES 4 TABLET WITH MEAL AND WATER AT APPROXIMATELY SAME TIME EACH DAY.
     Route: 048
     Dates: start: 201910
  3. RITUXAN [Suspect]
     Active Substance: RITUXIMAB
     Indication: PRODUCT USED FOR UNKNOWN INDICATION
     Dosage: VIAL WITH MEAL AND WATER AT APPROXIMATELY SAME TIME EACH DAY
     Route: 048

REACTIONS (15)
  - Eructation [Unknown]
  - Hepatic function abnormal [Unknown]
  - Dizziness [Unknown]
  - Constipation [Unknown]
  - Abdominal distension [Unknown]
  - Alanine aminotransferase increased [Unknown]
  - Flatulence [Unknown]
  - Fall [Unknown]
  - Myalgia [Unknown]
  - Arthritis [Unknown]
  - Yellow skin [Unknown]
  - Spinal fracture [Unknown]
  - Drug hypersensitivity [Unknown]
  - Arthralgia [Unknown]
  - Back pain [Unknown]

NARRATIVE: CASE EVENT DATE: 202005
